FAERS Safety Report 26163902 (Version 1)
Quarter: 2025Q4

REPORT INFORMATION
  Report Type: Spontaneous
  Country: US (occurrence: US)
  Receive Date: 20251216
  Receipt Date: 20251216
  Transmission Date: 20260118
  Serious: Yes (Hospitalization, Other)
  Sender: SAMSUNG BIOEPIS
  Company Number: US-SAMSUNG BIOEPIS-SB-2025-41466

PATIENT
  Age: 53 Year
  Sex: Female

DRUGS (2)
  1. INFLIXIMAB [Suspect]
     Active Substance: INFLIXIMAB
     Indication: Cardiac sarcoidosis
  2. INFLIXIMAB [Suspect]
     Active Substance: INFLIXIMAB
     Indication: Neurosarcoidosis

REACTIONS (5)
  - Pneumonia bacterial [Unknown]
  - Febrile neutropenia [Unknown]
  - Lupus nephritis [Unknown]
  - Pulmonary alveolar haemorrhage [Unknown]
  - Off label use [Unknown]
